FAERS Safety Report 11499429 (Version 1)
Quarter: 2015Q3

REPORT INFORMATION
  Report Type: Spontaneous
  Country: US (occurrence: US)
  Receive Date: 20150914
  Receipt Date: 20150914
  Transmission Date: 20151125
  Serious: No
  Sender: FDA-Public Use
  Company Number: US-TEVA-554184USA

PATIENT
  Age: 56 Year
  Sex: Male

DRUGS (6)
  1. TRAMADOL. [Concomitant]
     Active Substance: TRAMADOL
     Indication: PANIC ATTACK
  2. ATIVAN [Concomitant]
     Active Substance: LORAZEPAM
  3. CINNAMON. [Concomitant]
     Active Substance: CINNAMON
  4. CURCUMIN [Concomitant]
     Active Substance: CURCUMIN
  5. PANTOPRAZOLE [Suspect]
     Active Substance: PANTOPRAZOLE SODIUM
     Dates: start: 20150327, end: 20150406
  6. DEXLANSOPRAZOLE [Concomitant]
     Active Substance: DEXLANSOPRAZOLE

REACTIONS (3)
  - Platelet count decreased [Unknown]
  - Vision blurred [Unknown]
  - Feeling abnormal [Unknown]

NARRATIVE: CASE EVENT DATE: 20150406
